FAERS Safety Report 4279259-X (Version None)
Quarter: 2004Q1

REPORT INFORMATION
  Report Type: 
  Country: None (occurrence: None)
  Receive Date: 20040126
  Receipt Date: 20040126
  Transmission Date: 20041129
  Serious: Yes (Other)
  Sender: FDA-Public Use
  Company Number: None

PATIENT
  Age: 80 Year
  Sex: Male
  Weight: 54.4 kg

DRUGS (1)
  1. GATIFLOXACIN [Suspect]

REACTIONS (1)
  - CONVULSION [None]
